FAERS Safety Report 24718003 (Version 1)
Quarter: 2024Q4

REPORT INFORMATION
  Report Type: Spontaneous
  Country: AU (occurrence: AU)
  Receive Date: 20241210
  Receipt Date: 20241210
  Transmission Date: 20250115
  Serious: Yes (Life-Threatening, Hospitalization, Other)
  Sender: ANI
  Company Number: AU-ANIPHARMA-2024-AU-000411

PATIENT
  Age: 56 Year
  Sex: Female

DRUGS (13)
  1. ANASTROZOLE [Suspect]
     Active Substance: ANASTROZOLE
     Indication: Breast cancer
     Dosage: 1 MILLIGRAM
  2. MONTELUKAST SODIUM [Suspect]
     Active Substance: MONTELUKAST\MONTELUKAST SODIUM
     Dosage: 10 MILLIGRAM
  3. PHENERGAN [Suspect]
     Active Substance: PROMETHAZINE HYDROCHLORIDE
  4. ROSUVASTATIN CALCIUM [Suspect]
     Active Substance: ROSUVASTATIN CALCIUM
     Dosage: 10 MILLIGRAM
  5. ALBUTEROL [Suspect]
     Active Substance: ALBUTEROL
  6. COMIRNATY (TOZINAMERAN) [Suspect]
     Active Substance: TOZINAMERAN
  7. NOVORAPID [Suspect]
     Active Substance: INSULIN ASPART
     Dosage: 15 INTERNATIONAL UNIT QD
  8. APIXABAN [Suspect]
     Active Substance: APIXABAN
     Dosage: 10 MILLIGRAM, QD
  9. ESOMEPRAZOLE [Suspect]
     Active Substance: ESOMEPRAZOLE
     Dosage: 40 MILLIGRAM, QD
  10. FAMOTIDINE [Suspect]
     Active Substance: FAMOTIDINE
     Dosage: 20 MILLIGRAM
  11. INSULIN GLARGINE [Suspect]
     Active Substance: INSULIN GLARGINE
     Dosage: 36 INTERNATIONAL UNIT QD
  12. LORATADINE [Suspect]
     Active Substance: LORATADINE
     Dosage: 40 MILLIGRAM, QD
  13. METFORMIN HYDROCHLORIDE [Suspect]
     Active Substance: METFORMIN HYDROCHLORIDE
     Dosage: 2 GRAM, QD

REACTIONS (12)
  - Anaphylactic reaction [Recovering/Resolving]
  - Tongue biting [Unknown]
  - Upper respiratory tract infection [Unknown]
  - Viral test positive [Unknown]
  - COVID-19 [Unknown]
  - Human rhinovirus test positive [Unknown]
  - Mast cell activation syndrome [Recovering/Resolving]
  - Mouth haemorrhage [Unknown]
  - Pneumonia [Unknown]
  - Pneumonia haemophilus [Unknown]
  - Respiratory failure [Unknown]
  - Respiratory syncytial virus test positive [Unknown]

NARRATIVE: CASE EVENT DATE: 20180718
